FAERS Safety Report 6586926-1 (Version None)
Quarter: 2010Q1

REPORT INFORMATION
  Report Type: 
  Country: None (occurrence: None)
  Receive Date: 20100217
  Receipt Date: 20090515
  Transmission Date: 20100710
  Serious: No
  Sender: FDA-Public Use
  Company Number: US-ALLERGAN-0903921US

PATIENT
  Age: 45 Year
  Sex: Female

DRUGS (1)
  1. BOTOX COSMETIC [Suspect]
     Indication: SKIN WRINKLING
     Dosage: 20 UNITS, SINGLE
     Route: 030
     Dates: start: 20090320, end: 20090320

REACTIONS (12)
  - ANXIETY [None]
  - ARTHRALGIA [None]
  - DIZZINESS [None]
  - FACIAL PARESIS [None]
  - HEADACHE [None]
  - HYPOAESTHESIA [None]
  - NAUSEA [None]
  - PAIN IN EXTREMITY [None]
  - PARAESTHESIA [None]
  - SKIN DISCOLOURATION [None]
  - SKIN DISORDER [None]
  - SWELLING FACE [None]
